FAERS Safety Report 8523169-6 (Version None)
Quarter: 2012Q3

REPORT INFORMATION
  Report Type: 
  Country: None (occurrence: None)
  Receive Date: 20120720
  Receipt Date: 20120710
  Transmission Date: 20120928
  Serious: Yes (Disabling, Other)
  Sender: FDA-Public Use
  Company Number: DK-GE HEALTHCARE MEDICAL DIAGNOSTICS-VISP-NO-1106S-0226

PATIENT
  Sex: Female
  Weight: 57 kg

DRUGS (2)
  1. VISIPAQUE [Suspect]
     Indication: HAEMATURIA
     Route: 042
     Dates: start: 20101207, end: 20101207
  2. VISIPAQUE [Suspect]
     Indication: ABDOMINAL PAIN

REACTIONS (5)
  - URTICARIA CHOLINERGIC [None]
  - URTICARIA [None]
  - PHOTOSENSITIVITY REACTION [None]
  - HYPERAESTHESIA [None]
  - HYPERSENSITIVITY [None]
